FAERS Safety Report 14479251 (Version 2)
Quarter: 2018Q1

REPORT INFORMATION
  Report Type: Spontaneous
  Country: DE (occurrence: DE)
  Receive Date: 20180202
  Receipt Date: 20180322
  Transmission Date: 20180509
  Serious: Yes (Other)
  Sender: FDA-Public Use
  Company Number: DE-AUROBINDO-AUR-APL-2018-004097

PATIENT
  Age: 66 Year
  Sex: Female
  Weight: 100 kg

DRUGS (65)
  1. CLOPIDOGREL [Suspect]
     Active Substance: CLOPIDOGREL BISULFATE
     Dosage: ()
     Route: 065
  2. ELIQUIS [Suspect]
     Active Substance: APIXABAN
     Dosage: 2.5 MG, BID
     Route: 065
  3. LEFAX                              /00282601/ [Concomitant]
     Active Substance: DIMETHICONE\SILICON DIOXIDE
     Indication: PRODUCT USED FOR UNKNOWN INDICATION
     Dosage: UNK
     Route: 065
  4. L-THYROXIN [Concomitant]
     Active Substance: LEVOTHYROXINE SODIUM
     Indication: PRODUCT USED FOR UNKNOWN INDICATION
     Dosage: UNK
     Route: 065
  5. CANDESARTAN. [Concomitant]
     Active Substance: CANDESARTAN
     Dosage: ()
     Route: 065
  6. EZETROL [Concomitant]
     Active Substance: EZETIMIBE
     Dosage: ()
     Route: 065
  7. SERTRALINE [Concomitant]
     Active Substance: SERTRALINE HYDROCHLORIDE
     Indication: PRODUCT USED FOR UNKNOWN INDICATION
     Dosage: UNK
     Route: 065
  8. TOUJEO [Concomitant]
     Active Substance: INSULIN GLARGINE
     Dosage: ()
     Route: 065
  9. VOMEX A [Concomitant]
     Active Substance: DIMENHYDRINATE
     Dosage: ()
     Route: 065
  10. CRESTOR [Concomitant]
     Active Substance: ROSUVASTATIN CALCIUM
     Dosage: ()
     Route: 065
  11. CRESTOR [Concomitant]
     Active Substance: ROSUVASTATIN CALCIUM
     Dosage: ()
     Route: 065
  12. RANEXA [Concomitant]
     Active Substance: RANOLAZINE
     Dosage: ()
     Route: 065
  13. RANEXA [Concomitant]
     Active Substance: RANOLAZINE
     Dosage: ()
     Route: 065
  14. RANEXA [Concomitant]
     Active Substance: RANOLAZINE
     Dosage: ()
     Route: 065
  15. ELIQUIS [Suspect]
     Active Substance: APIXABAN
     Indication: CEREBROVASCULAR ACCIDENT PROPHYLAXIS
     Dosage: 2.5 MG, BID
     Route: 065
  16. CANDESARTAN. [Concomitant]
     Active Substance: CANDESARTAN
     Dosage: ()
     Route: 065
  17. VOMEX A [Concomitant]
     Active Substance: DIMENHYDRINATE
     Dosage: ()
     Route: 065
  18. CRESTOR [Concomitant]
     Active Substance: ROSUVASTATIN CALCIUM
     Indication: PRODUCT USED FOR UNKNOWN INDICATION
     Dosage: UNK
     Route: 065
  19. RANEXA [Concomitant]
     Active Substance: RANOLAZINE
     Dosage: ()
     Route: 065
  20. ELIQUIS [Suspect]
     Active Substance: APIXABAN
     Dosage: 5 MG, BID
     Route: 065
  21. TOUJEO [Concomitant]
     Active Substance: INSULIN GLARGINE
     Indication: PRODUCT USED FOR UNKNOWN INDICATION
     Dosage: UNK
     Route: 065
  22. VOMEX A [Concomitant]
     Active Substance: DIMENHYDRINATE
     Dosage: ()
     Route: 065
  23. VOMEX A [Concomitant]
     Active Substance: DIMENHYDRINATE
     Dosage: ()
     Route: 065
  24. RANEXA [Concomitant]
     Active Substance: RANOLAZINE
     Indication: PRODUCT USED FOR UNKNOWN INDICATION
     Dosage: UNK
     Route: 065
  25. ELIQUIS [Suspect]
     Active Substance: APIXABAN
     Dosage: 5 MG, BID
     Route: 065
  26. ELIQUIS [Suspect]
     Active Substance: APIXABAN
     Dosage: 5 MG, BID
     Route: 065
  27. CANDESARTAN. [Concomitant]
     Active Substance: CANDESARTAN
     Dosage: ()
     Route: 065
  28. SERTRALINE [Concomitant]
     Active Substance: SERTRALINE HYDROCHLORIDE
     Dosage: ()
     Route: 065
  29. TOUJEO [Concomitant]
     Active Substance: INSULIN GLARGINE
     Dosage: ()
     Route: 065
  30. TOUJEO [Concomitant]
     Active Substance: INSULIN GLARGINE
     Dosage: ()
     Route: 065
  31. VOMEX A [Concomitant]
     Active Substance: DIMENHYDRINATE
     Indication: PRODUCT USED FOR UNKNOWN INDICATION
     Dosage: UNK
     Route: 065
  32. RANEXA [Concomitant]
     Active Substance: RANOLAZINE
     Dosage: ()
     Route: 065
  33. ELIQUIS [Suspect]
     Active Substance: APIXABAN
     Dosage: 2.5 MG, BID
     Route: 065
  34. ELIQUIS [Suspect]
     Active Substance: APIXABAN
     Dosage: 2.5 MG, BID
     Route: 065
  35. CANDESARTAN. [Concomitant]
     Active Substance: CANDESARTAN
     Dosage: ()
     Route: 065
  36. EZETROL [Concomitant]
     Active Substance: EZETIMIBE
     Dosage: ()
     Route: 065
  37. SERTRALINE [Concomitant]
     Active Substance: SERTRALINE HYDROCHLORIDE
     Dosage: ()
     Route: 065
  38. TOUJEO [Concomitant]
     Active Substance: INSULIN GLARGINE
     Dosage: ()
     Route: 065
  39. CRESTOR [Concomitant]
     Active Substance: ROSUVASTATIN CALCIUM
     Dosage: ()
     Route: 065
  40. CRESTOR [Concomitant]
     Active Substance: ROSUVASTATIN CALCIUM
     Dosage: ()
     Route: 065
  41. ELIQUIS [Suspect]
     Active Substance: APIXABAN
     Indication: PRODUCT USED FOR UNKNOWN INDICATION
     Dosage: 5 MG, BID
     Route: 065
  42. LEFAX                              /00282601/ [Concomitant]
     Active Substance: DIMETHICONE\SILICON DIOXIDE
     Dosage: ()
     Route: 065
  43. EZETROL [Concomitant]
     Active Substance: EZETIMIBE
     Indication: PRODUCT USED FOR UNKNOWN INDICATION
     Dosage: UNK
     Route: 065
  44. EZETROL [Concomitant]
     Active Substance: EZETIMIBE
     Dosage: ()
     Route: 065
  45. CRESTOR [Concomitant]
     Active Substance: ROSUVASTATIN CALCIUM
     Dosage: ()
     Route: 065
  46. CRESTOR [Concomitant]
     Active Substance: ROSUVASTATIN CALCIUM
     Dosage: ()
     Route: 065
  47. CLOPIDOGREL [Suspect]
     Active Substance: CLOPIDOGREL BISULFATE
     Indication: PRODUCT USED FOR UNKNOWN INDICATION
     Dosage: UNK
     Route: 065
  48. ELIQUIS [Suspect]
     Active Substance: APIXABAN
     Dosage: 2.5 MG, BID
     Route: 065
  49. ELIQUIS [Suspect]
     Active Substance: APIXABAN
     Dosage: 5 MG, BID
     Route: 065
  50. LEFAX                              /00282601/ [Concomitant]
     Active Substance: DIMETHICONE\SILICON DIOXIDE
     Dosage: ()
     Route: 065
  51. LEFAX                              /00282601/ [Concomitant]
     Active Substance: DIMETHICONE\SILICON DIOXIDE
     Dosage: ()
     Route: 065
  52. L-THYROXIN [Concomitant]
     Active Substance: LEVOTHYROXINE SODIUM
     Dosage: ()
     Route: 065
  53. CANDESARTAN. [Concomitant]
     Active Substance: CANDESARTAN
     Indication: PRODUCT USED FOR UNKNOWN INDICATION
     Dosage: UNK
     Route: 065
  54. CANDESARTAN. [Concomitant]
     Active Substance: CANDESARTAN
     Dosage: ()
     Route: 065
  55. EZETROL [Concomitant]
     Active Substance: EZETIMIBE
     Dosage: ()
     Route: 065
  56. SERTRALINE [Concomitant]
     Active Substance: SERTRALINE HYDROCHLORIDE
     Dosage: ()
     Route: 065
  57. VOMEX A [Concomitant]
     Active Substance: DIMENHYDRINATE
     Dosage: ()
     Route: 065
  58. VOMEX A [Concomitant]
     Active Substance: DIMENHYDRINATE
     Dosage: ()
     Route: 065
  59. CANDESARTAN. [Concomitant]
     Active Substance: CANDESARTAN
     Dosage: ()
     Route: 065
  60. EZETROL [Concomitant]
     Active Substance: EZETIMIBE
     Dosage: ()
     Route: 065
  61. EZETROL [Concomitant]
     Active Substance: EZETIMIBE
     Dosage: ()
     Route: 065
  62. PANTOPRAZOL [Concomitant]
     Active Substance: PANTOPRAZOLE SODIUM
     Indication: PRODUCT USED FOR UNKNOWN INDICATION
     Dosage: UNK
     Route: 065
  63. TOUJEO [Concomitant]
     Active Substance: INSULIN GLARGINE
     Dosage: ()
     Route: 065
  64. TOUJEO [Concomitant]
     Active Substance: INSULIN GLARGINE
     Dosage: ()
     Route: 065
  65. RANEXA [Concomitant]
     Active Substance: RANOLAZINE
     Dosage: ()
     Route: 065

REACTIONS (2)
  - Gastrointestinal haemorrhage [Unknown]
  - Off label use [Unknown]
